FAERS Safety Report 10661352 (Version 2)
Quarter: 2014Q4

REPORT INFORMATION
  Report Type: Report from Study
  Country: CA (occurrence: CA)
  Receive Date: 20141218
  Receipt Date: 20141226
  Transmission Date: 20150529
  Serious: Yes (Other)
  Sender: FDA-Public Use
  Company Number: CA-AMGEN-CANSL2014097944

PATIENT
  Age: 61 Year
  Sex: Female

DRUGS (1)
  1. PROLIA [Suspect]
     Active Substance: DENOSUMAB
     Indication: OSTEOPOROSIS POSTMENOPAUSAL
     Dosage: 60 MG, TWICE EVERY MONTH
     Route: 058
     Dates: start: 20141203

REACTIONS (3)
  - Breast cancer stage IV [Unknown]
  - Incorrect drug administration duration [Unknown]
  - Metastases to bone [Unknown]
